FAERS Safety Report 8391476-6 (Version None)
Quarter: 2012Q2

REPORT INFORMATION
  Report Type: 
  Country: None (occurrence: None)
  Receive Date: 20120529
  Receipt Date: 20120522
  Transmission Date: 20120825
  Serious: Yes (Hospitalization)
  Sender: FDA-Public Use
  Company Number: US-BAYER-2012-052074

PATIENT
  Age: 27 Year
  Sex: Female
  Weight: 115.87 kg

DRUGS (3)
  1. YASMIN [Suspect]
  2. PHENTERMINE [Concomitant]
     Dosage: 37.5 MG, OM
     Dates: start: 20060113
  3. DARVOCET [Concomitant]
     Dosage: 1-2 TID, PRN

REACTIONS (1)
  - DEEP VEIN THROMBOSIS [None]
